FAERS Safety Report 7705795-7 (Version None)
Quarter: 2011Q3

REPORT INFORMATION
  Report Type: 
  Country: None (occurrence: None)
  Receive Date: 20110824
  Receipt Date: 20110824
  Transmission Date: 20111222
  Serious: Yes (Hospitalization)
  Sender: FDA-Public Use
  Company Number: None

PATIENT
  Sex: Female
  Weight: 81 kg

DRUGS (2)
  1. VALPROIC ACID [Concomitant]
     Dosage: 500MG
     Route: 048
     Dates: start: 20110720, end: 20110815
  2. HYDRALAZINE HCL [Suspect]
     Dosage: 75MG
     Route: 048
     Dates: start: 20110803, end: 20110815

REACTIONS (5)
  - UROSEPSIS [None]
  - URINE ANALYSIS ABNORMAL [None]
  - SYSTEMIC INFLAMMATORY RESPONSE SYNDROME [None]
  - PYURIA [None]
  - DELIRIUM [None]
